FAERS Safety Report 9432826 (Version 1)
Quarter: 2013Q3

REPORT INFORMATION
  Report Type: Spontaneous
  Country: AU (occurrence: None)
  Receive Date: 20130729
  Receipt Date: 20130729
  Transmission Date: 20140515
  Serious: Yes (Hospitalization, Other)
  Sender: FDA-Public Use
  Company Number: IMP_06761_2013

PATIENT
  Age: 30 Year
  Sex: Female

DRUGS (1)
  1. PROMETHAZINE [Suspect]
     Indication: INSOMNIA
     Dosage: 375 MG (NOT THE PRESCRIBED AMOUNT IN EVENING ON WORKDAYS)

REACTIONS (8)
  - Anxiety [None]
  - Dysphoria [None]
  - Vision blurred [None]
  - Drug abuse [None]
  - Drug dependence [None]
  - Memory impairment [None]
  - Disturbance in attention [None]
  - Withdrawal syndrome [None]
